FAERS Safety Report 5453328-0 (Version None)
Quarter: 2007Q3

REPORT INFORMATION
  Report Type: 
  Country: None (occurrence: None)
  Receive Date: 20070813
  Receipt Date: 20070427
  Transmission Date: 20080115
  Serious: Yes (Other)
  Sender: FDA-Public Use
  Company Number: 20073744

PATIENT
  Sex: Female

DRUGS (2)
  1. LIORESAL [Suspect]
     Indication: MUSCLE SPASTICITY
     Dosage: MCG, DAILY, INTRATHECAL
     Route: 037
  2. COMPOUNDED BACLOFEN [Concomitant]

REACTIONS (5)
  - HYPERHIDROSIS [None]
  - HYPERTONIA [None]
  - HYPOTONIA [None]
  - NAUSEA [None]
  - PARAESTHESIA [None]
